FAERS Safety Report 12219206 (Version 6)
Quarter: 2016Q3

REPORT INFORMATION
  Report Type: Spontaneous
  Country: US (occurrence: US)
  Receive Date: 20160329
  Receipt Date: 20160721
  Transmission Date: 20161109
  Serious: Yes (Hospitalization)
  Sender: FDA-Public Use
  Company Number: US-ACTELION-A-US2016-133487

PATIENT
  Age: 45 Year
  Sex: Female

DRUGS (4)
  1. CHLORAPREP [Suspect]
     Active Substance: CHLORHEXIDINE GLUCONATE\ISOPROPYL ALCOHOL
     Indication: PRODUCT USED FOR UNKNOWN INDICATION
     Route: 065
  2. OPSUMIT [Suspect]
     Active Substance: MACITENTAN
     Indication: PULMONARY ARTERIAL HYPERTENSION
     Dosage: UNK
     Route: 048
  3. VELETRI [Suspect]
     Active Substance: EPOPROSTENOL
     Indication: PULMONARY ARTERIAL HYPERTENSION
     Dosage: 30 NG/KG, PER MIN
     Route: 042
     Dates: start: 20151215
  4. ADCIRCA [Concomitant]
     Active Substance: TADALAFIL

REACTIONS (8)
  - Application site pruritus [Unknown]
  - Pulmonary oedema [Unknown]
  - Application site erythema [Unknown]
  - Application site rash [Unknown]
  - Oedema peripheral [Unknown]
  - Hypersensitivity [Unknown]
  - Rash [Unknown]
  - Hyperhidrosis [Unknown]
